FAERS Safety Report 6934911-X (Version None)
Quarter: 2010Q3

REPORT INFORMATION
  Report Type: 
  Country: None (occurrence: None)
  Receive Date: 20100821
  Receipt Date: 20100809
  Transmission Date: 20110219
  Serious: Yes (Hospitalization)
  Sender: FDA-Public Use
  Company Number: GXKR2010FR09030

PATIENT
  Age: 80 Year
  Sex: Male

DRUGS (12)
  1. IRINOTECAN EBEWE (NGX) [Suspect]
     Indication: COLON CANCER
     Dosage: 1 DF/DAY (CYCLIC)
     Route: 042
     Dates: start: 20081201, end: 20091201
  2. FLUOROURACIL [Suspect]
     Indication: COLON CANCER
     Dosage: 1 DF/DAY (CYCLIC)
     Route: 042
     Dates: start: 20081201, end: 20091201
  3. PREVISCAN [Concomitant]
  4. DIFFU K [Concomitant]
  5. ESOMEPRAZOLE MAGNESIUM [Concomitant]
  6. AMIODARONE [Concomitant]
  7. FUROSEMIDE [Concomitant]
  8. PERINDOPRIL [Concomitant]
  9. SPIRONOLACTONE [Concomitant]
  10. BISOPROLOL FUMARATE [Concomitant]
  11. DIOSMECTAL [Concomitant]
  12. MAGNESIUM [Concomitant]

REACTIONS (8)
  - ATRIAL FIBRILLATION [None]
  - CARDIAC FAILURE [None]
  - CARDIOMYOPATHY [None]
  - HEPATOJUGULAR REFLUX [None]
  - OEDEMA PERIPHERAL [None]
  - RIGHT VENTRICULAR FAILURE [None]
  - VENTRICULAR ARRHYTHMIA [None]
  - WEIGHT INCREASED [None]
